FAERS Safety Report 7981717-9 (Version None)
Quarter: 2011Q4

REPORT INFORMATION
  Report Type: 
  Country: None (occurrence: None)
  Receive Date: 20111213
  Receipt Date: 20111207
  Transmission Date: 20120403
  Serious: Yes (Hospitalization, Other)
  Sender: FDA-Public Use
  Company Number: GER/GER/11/0022258

PATIENT
  Sex: Female
  Weight: 3.3 kg

DRUGS (3)
  1. FEMIBION (FEMIBION) [Concomitant]
  2. VENLAFAXINE [Suspect]
     Indication: PRODUCT USED FOR UNKNOWN INDICATION
     Dosage: 75 MG, 1 D, TRANSPLACENTAL, 37.5 MG, 1 D, TRANSPLACENTAL
     Route: 064
     Dates: start: 20090101
  3. VENLAFAXINE [Suspect]
     Indication: PRODUCT USED FOR UNKNOWN INDICATION
     Dosage: 75 MG, 1 D, TRANSPLACENTAL, 37.5 MG, 1 D, TRANSPLACENTAL
     Route: 064
     Dates: start: 20100711, end: 20110405

REACTIONS (3)
  - NEONATAL DISORDER [None]
  - MATERNAL DRUGS AFFECTING FOETUS [None]
  - HEART RATE DECREASED [None]
